FAERS Safety Report 6147210-3 (Version None)
Quarter: 2009Q2

REPORT INFORMATION
  Report Type: 
  Country: None (occurrence: None)
  Receive Date: 20090407
  Receipt Date: 20090310
  Transmission Date: 20091009
  Serious: No
  Sender: FDA-Public Use
  Company Number: US-TYCO HEALTHCARE/MALLINCKRODT-T200900654

PATIENT
  Sex: Male

DRUGS (1)
  1. METHADOSE [Suspect]
     Indication: PAIN
     Dosage: 90 MG, QD
     Route: 048
     Dates: start: 20070101

REACTIONS (2)
  - PAIN [None]
  - UNDERDOSE [None]
